FAERS Safety Report 5486090-6 (Version None)
Quarter: 2007Q4

REPORT INFORMATION
  Report Type: 
  Country: None (occurrence: None)
  Receive Date: 20071015
  Receipt Date: 20071003
  Transmission Date: 20080405
  Serious: Yes (Hospitalization)
  Sender: FDA-Public Use
  Company Number: HU-PFIZER INC-2007084749

PATIENT
  Age: 63 Year
  Sex: Female

DRUGS (2)
  1. VARENICLINE TABLETS [Suspect]
     Indication: EX-SMOKER
     Route: 048
  2. SALBUTAMOL [Concomitant]
     Route: 055

REACTIONS (1)
  - CHRONIC OBSTRUCTIVE PULMONARY DISEASE [None]
